FAERS Safety Report 23707186 (Version 3)
Quarter: 2024Q2

REPORT INFORMATION
  Report Type: Spontaneous
  Country: US (occurrence: US)
  Receive Date: 20240404
  Receipt Date: 20240604
  Transmission Date: 20240716
  Serious: No
  Sender: FDA-Public Use
  Company Number: US-LUPIN PHARMACEUTICALS INC.-2024-02692

PATIENT

DRUGS (1)
  1. LEVOTHYROXINE SODIUM [Suspect]
     Active Substance: LEVOTHYROXINE SODIUM
     Indication: Product used for unknown indication
     Dosage: 1 DOSAGE FORM, QD, TAKE ONE HALF OF THE TABLET EVERY DAY
     Route: 065

REACTIONS (4)
  - Product prescribing issue [Unknown]
  - Wrong technique in product usage process [Unknown]
  - Product contamination physical [Unknown]
  - No adverse event [Unknown]
